FAERS Safety Report 7469481-3 (Version None)
Quarter: 2011Q2

REPORT INFORMATION
  Report Type: 
  Country: None (occurrence: None)
  Receive Date: 20110510
  Receipt Date: 20110426
  Transmission Date: 20111010
  Serious: Yes (Other)
  Sender: FDA-Public Use
  Company Number: US-JNJFOC-20110411203

PATIENT
  Age: 68 Year
  Sex: Male
  Weight: 84 kg

DRUGS (3)
  1. REMICADE [Suspect]
     Indication: ARTHRITIS
     Route: 042
  2. LIPITOR [Suspect]
     Indication: BLOOD CHOLESTEROL INCREASED
     Route: 048
  3. IMURAN [Concomitant]

REACTIONS (7)
  - BEDRIDDEN [None]
  - ARTHRALGIA [None]
  - RAYNAUD'S PHENOMENON [None]
  - ASTHENIA [None]
  - DRUG INEFFECTIVE [None]
  - MYALGIA [None]
  - DISCOMFORT [None]
